FAERS Safety Report 24378582 (Version 1)
Quarter: 2024Q3

REPORT INFORMATION
  Report Type: Spontaneous
  Country: US (occurrence: None)
  Receive Date: 20240928
  Receipt Date: 20240928
  Transmission Date: 20241016
  Serious: Yes (Hospitalization)
  Sender: Public
  Company Number: None

PATIENT
  Age: 69 Year
  Sex: Female
  Weight: 68.5 kg

DRUGS (4)
  1. FLUOROURACIL [Suspect]
     Active Substance: FLUOROURACIL
     Dates: end: 20240915
  2. LEUCOVORIN CALCIUM [Suspect]
     Active Substance: LEUCOVORIN CALCIUM
  3. NIVOLUMAB [Suspect]
     Active Substance: NIVOLUMAB
     Dates: end: 20240913
  4. ELOXATIN [Suspect]
     Active Substance: OXALIPLATIN
     Dosage: OTHER QUANTITY : 140.25MG;?
     Dates: end: 20240913

REACTIONS (10)
  - Abdominal pain [None]
  - Nausea [None]
  - Vomiting [None]
  - Hypophagia [None]
  - Chest pain [None]
  - Stoma site reaction [None]
  - Administration site odour [None]
  - Fungal infection [None]
  - Ascites [None]
  - Pleural effusion [None]

NARRATIVE: CASE EVENT DATE: 20240915
